FAERS Safety Report 21169259 (Version 2)
Quarter: 2022Q4

REPORT INFORMATION
  Report Type: Spontaneous
  Country: KR (occurrence: KR)
  Receive Date: 20220804
  Receipt Date: 20221017
  Transmission Date: 20230112
  Serious: Yes (Other)
  Sender: FDA-Public Use
  Company Number: KR-CELLTRION INC.-2022KR012143

PATIENT

DRUGS (11)
  1. INFLIXIMAB [Suspect]
     Active Substance: INFLIXIMAB
     Indication: Rheumatoid arthritis
     Dosage: 120 MG
     Route: 058
     Dates: start: 20220615
  2. INFLIXIMAB [Suspect]
     Active Substance: INFLIXIMAB
     Indication: Latent tuberculosis
  3. ACECLOFENAC [Concomitant]
     Active Substance: ACECLOFENAC
     Dosage: 1 TAB, QD
     Dates: start: 202108
  4. TRACINONE [Concomitant]
     Dosage: 0.5 TAB, QD
     Dates: start: 202108
  5. ESWONAMP [Concomitant]
     Dosage: 20MG, QD
     Dates: start: 202108
  6. YUHAN METHOTREXATE [Concomitant]
     Dosage: 1 TAB, ONCE A WEEK
     Dates: start: 202108
  7. CALCIUM CARBONATE\CHOLECALCIFEROL [Concomitant]
     Active Substance: CALCIUM CARBONATE\CHOLECALCIFEROL
     Dosage: 1 TAB, QD
     Dates: start: 202108
  8. LIPILOU [Concomitant]
     Dosage: 1 TAB, QD
     Dates: start: 202108
  9. ALMAGEL-F [Concomitant]
     Dosage: FREQUENTLY
     Dates: start: 202108
  10. LODIVIKAR [Concomitant]
     Dosage: 1 TAB, QD
     Dates: start: 202108
  11. ISONIAZID [Concomitant]
     Active Substance: ISONIAZID
     Dosage: 3 TAB, QD
     Dates: start: 202206

REACTIONS (3)
  - Cataract operation [Recovered/Resolved]
  - Injection site pain [Recovered/Resolved]
  - Off label use [Unknown]

NARRATIVE: CASE EVENT DATE: 20220715
